FAERS Safety Report 19880414 (Version 1)
Quarter: 2021Q3

REPORT INFORMATION
  Report Type: Spontaneous
  Country: ES (occurrence: ES)
  Receive Date: 20210924
  Receipt Date: 20210924
  Transmission Date: 20211014
  Serious: Yes (Other)
  Sender: FDA-Public Use
  Company Number: NVSC2021ES215369

PATIENT
  Age: 28 Year
  Sex: Female

DRUGS (1)
  1. KYMRIAH [Suspect]
     Active Substance: TISAGENLECLEUCEL
     Indication: ACUTE LYMPHOCYTIC LEUKAEMIA
     Dosage: UNK (2 X 10E6 ? 6,0 X 10E8 CELULAS DISPERSION PARA PERFUSION 1?3 BOLSAS DE PERFUSION (1 DOSIS DE TRA
     Route: 042
     Dates: start: 20200608, end: 20200608

REACTIONS (1)
  - Cytokine release syndrome [Recovered/Resolved]

NARRATIVE: CASE EVENT DATE: 20200609
